FAERS Safety Report 13027550 (Version 12)
Quarter: 2020Q2

REPORT INFORMATION
  Report Type: Report from Study
  Country: None (occurrence: NL)
  Receive Date: 20161214
  Receipt Date: 20200613
  Transmission Date: 20200713
  Serious: Yes (Hospitalization, Other)
  Sender: FDA-Public Use
  Company Number: NL-ABBVIE-16K-114-1687729-00

PATIENT
  Age: 63 Year
  Sex: Female

DRUGS (4)
  1. MADOPAR DISPERSIBL [Suspect]
     Active Substance: BENSERAZIDE HYDROCHLORIDE\LEVODOPA
     Indication: PRODUCT USED FOR UNKNOWN INDICATION
     Route: 065
  2. DUODOPA [Suspect]
     Active Substance: CARBIDOPA\LEVODOPA
     Dosage: MD- 4.0 ML CD 3.8 ML/HR ED 2.5 ML,16 HOUR ADMINISTRATION
     Route: 050
  3. DUODOPA [Suspect]
     Active Substance: CARBIDOPA\LEVODOPA
     Indication: PARKINSON^S DISEASE
     Dosage: MD: 4, CD: 4.3, ED: 0
     Route: 050
     Dates: start: 20110718
  4. DUODOPA [Suspect]
     Active Substance: CARBIDOPA\LEVODOPA
     Dosage: MD: 4.0, CD: 3.7, ED: 2.5; 16 HOUR ADMINISTRATION
     Route: 050

REACTIONS (44)
  - Drug delivery system issue [Unknown]
  - Abnormal faeces [Not Recovered/Not Resolved]
  - Musculoskeletal stiffness [Not Recovered/Not Resolved]
  - Device dislocation [Unknown]
  - Stoma site odour [Recovered/Resolved]
  - Insomnia [Not Recovered/Not Resolved]
  - Diarrhoea [Recovered/Resolved]
  - Catheter site papule [Unknown]
  - Headache [Not Recovered/Not Resolved]
  - Dyskinesia [Not Recovered/Not Resolved]
  - Complication of device insertion [Recovered/Resolved]
  - Overdose [Not Recovered/Not Resolved]
  - Stoma site irritation [Recovered/Resolved]
  - Sleep disorder [Recovered/Resolved]
  - Fatigue [Not Recovered/Not Resolved]
  - Stoma site inflammation [Recovered/Resolved]
  - Wrong technique in product usage process [Unknown]
  - Device occlusion [Unknown]
  - On and off phenomenon [Not Recovered/Not Resolved]
  - Hyperkinesia [Not Recovered/Not Resolved]
  - Stoma site infection [Unknown]
  - Stoma site discharge [Recovered/Resolved]
  - Stoma site reaction [Recovered/Resolved]
  - Catheter site discolouration [Unknown]
  - Product administration error [Unknown]
  - Dystonia [Not Recovered/Not Resolved]
  - Insomnia [Recovered/Resolved]
  - Bradykinesia [Not Recovered/Not Resolved]
  - Medical device pain [Not Recovered/Not Resolved]
  - Incorrect dose administered [Unknown]
  - Weight increased [Not Recovered/Not Resolved]
  - Lung disorder [Not Recovered/Not Resolved]
  - Mobility decreased [Not Recovered/Not Resolved]
  - Head discomfort [Not Recovered/Not Resolved]
  - Weight decreased [Recovered/Resolved]
  - Stoma site pain [Not Recovered/Not Resolved]
  - Cognitive disorder [Recovering/Resolving]
  - Incisional hernia [Recovered/Resolved]
  - Photopsia [Recovered/Resolved]
  - Gait disturbance [Not Recovered/Not Resolved]
  - Pneumonia [Unknown]
  - Varicose vein [Unknown]
  - Freezing phenomenon [Not Recovered/Not Resolved]
  - Skin pressure mark [Not Recovered/Not Resolved]

NARRATIVE: CASE EVENT DATE: 20160720
